FAERS Safety Report 5856570-X (Version None)
Quarter: 2008Q3

REPORT INFORMATION
  Report Type: 
  Country: None (occurrence: None)
  Receive Date: 20080822
  Receipt Date: 20080822
  Transmission Date: 20090109
  Serious: Yes (Life-Threatening)
  Sender: FDA-Public Use
  Company Number: None

PATIENT
  Sex: Male
  Weight: 88.4514 kg

DRUGS (1)
  1. AVODART [Suspect]
     Indication: PROSTATIC DISORDER
     Dosage: 1 A DAY
     Dates: start: 20080714, end: 20080729

REACTIONS (1)
  - BLOOD GLUCOSE INCREASED [None]
